FAERS Safety Report 15918020 (Version 1)
Quarter: 2019Q1

REPORT INFORMATION
  Report Type: Spontaneous
  Country: US (occurrence: US)
  Receive Date: 20190205
  Receipt Date: 20190205
  Transmission Date: 20190417
  Serious: Yes (Other)
  Sender: FDA-Public Use
  Company Number: US-ABBVIE-19S-163-2642577-00

PATIENT
  Age: 70 Year
  Sex: Female
  Weight: 54.03 kg

DRUGS (5)
  1. POTASSIUM [Concomitant]
     Active Substance: POTASSIUM
     Indication: ELECTROLYTE SUBSTITUTION THERAPY
  2. SYNTHROID [Suspect]
     Active Substance: LEVOTHYROXINE SODIUM
     Indication: THYROIDITIS ACUTE
     Route: 048
     Dates: start: 1996
  3. VITAMIN D [Concomitant]
     Active Substance: CHOLECALCIFEROL
     Indication: VITAMIN SUPPLEMENTATION
  4. VITAMIN B12 [Concomitant]
     Active Substance: CYANOCOBALAMIN
     Indication: PERNICIOUS ANAEMIA
     Route: 050
  5. PRESERVISION [Concomitant]
     Active Substance: MINERALS\VITAMINS
     Indication: EYE DISORDER PROPHYLAXIS

REACTIONS (12)
  - Splenomegaly [Not Recovered/Not Resolved]
  - Colectomy [Unknown]
  - Malaise [Recovered/Resolved]
  - Dyspnoea [Not Recovered/Not Resolved]
  - Drug effect increased [Unknown]
  - Haemorrhoids [Unknown]
  - Hysterectomy [Unknown]
  - Heart rate increased [Recovered/Resolved]
  - Weight decreased [Recovering/Resolving]
  - Urinary incontinence [Unknown]
  - Episiotomy [Unknown]
  - Pyrexia [Recovering/Resolving]

NARRATIVE: CASE EVENT DATE: 2004
